FAERS Safety Report 9772600 (Version 1)
Quarter: 2013Q4

REPORT INFORMATION
  Report Type: Spontaneous
  Country: US (occurrence: US)
  Receive Date: 20131219
  Receipt Date: 20131219
  Transmission Date: 20140711
  Serious: No
  Sender: FDA-Public Use
  Company Number: US-PFIZER INC-2013362958

PATIENT
  Age: 48 Year
  Sex: Male
  Weight: 97.05 kg

DRUGS (2)
  1. ALPRAZOLAM [Suspect]
     Indication: ANXIETY
     Dosage: 5 MG, 2X/DAY
     Dates: start: 2013, end: 20131009
  2. EFFEXOR-XR [Concomitant]
     Indication: DEPRESSION
     Dosage: UNK, 1X/DAY

REACTIONS (5)
  - Drug withdrawal syndrome [Not Recovered/Not Resolved]
  - Dyskinesia [Not Recovered/Not Resolved]
  - Insomnia [Not Recovered/Not Resolved]
  - Ageusia [Not Recovered/Not Resolved]
  - Sinus disorder [Not Recovered/Not Resolved]
